FAERS Safety Report 21566012 (Version 1)
Quarter: 2022Q4

REPORT INFORMATION
  Report Type: Spontaneous
  Country: IE (occurrence: IE)
  Receive Date: 20221108
  Receipt Date: 20221108
  Transmission Date: 20230112
  Serious: Yes (Disabling, Other)
  Sender: FDA-Public Use
  Company Number: IE-MYLANLABS-2022M1121966

PATIENT
  Age: 62 Year
  Sex: Male

DRUGS (1)
  1. ZOLEDRONIC ACID [Suspect]
     Active Substance: ZOLEDRONIC ACID
     Indication: Hyperparathyroidism primary
     Dosage: 4 MILLIGRAM
     Route: 042

REACTIONS (6)
  - Periorbital inflammation [Recovered/Resolved]
  - Conjunctival oedema [Recovered/Resolved]
  - Ophthalmoplegia [Recovered/Resolved]
  - Exophthalmos [Recovered/Resolved]
  - Visual acuity reduced [Recovered/Resolved]
  - Off label use [Unknown]
